FAERS Safety Report 10310656 (Version 1)
Quarter: 2014Q3

REPORT INFORMATION
  Report Type: Spontaneous
  Country: US (occurrence: US)
  Receive Date: 20140717
  Receipt Date: 20140717
  Transmission Date: 20150326
  Serious: Yes (Hospitalization)
  Sender: FDA-Public Use
  Company Number: US-SA-2014SA093678

PATIENT
  Age: 52 Year
  Sex: Male

DRUGS (1)
  1. ALLEGRA [Suspect]
     Active Substance: FEXOFENADINE HYDROCHLORIDE
     Indication: HYPERSENSITIVITY
     Dosage: PRODUCT START DATE- ABOUT 2 YEARS AGO?PRODUCT END DATE-ABOUT 1 MONTH AGO
     Route: 048

REACTIONS (3)
  - Somnolence [Recovered/Resolved]
  - Road traffic accident [Recovered/Resolved]
  - Wrist fracture [Recovered/Resolved]
